FAERS Safety Report 18601693 (Version 3)
Quarter: 2021Q1

REPORT INFORMATION
  Report Type: Report from Study
  Country: CA (occurrence: CA)
  Receive Date: 20201210
  Receipt Date: 20210205
  Transmission Date: 20210419
  Serious: Yes (Other)
  Sender: FDA-Public Use
  Company Number: CA-ASTRAZENECA-2020SF60502

PATIENT
  Age: 22606 Day
  Sex: Female
  Weight: 152 kg

DRUGS (10)
  1. SYMBICORT [Concomitant]
     Active Substance: BUDESONIDE\FORMOTEROL FUMARATE DIHYDRATE
     Indication: ASTHMA
     Route: 055
     Dates: start: 20200302
  2. ATORVASTATIN [Concomitant]
     Active Substance: ATORVASTATIN
     Indication: BLOOD CHOLESTEROL DECREASED
     Dosage: 20 MG OD
     Route: 048
     Dates: start: 20151101
  3. DULOXETINE. [Concomitant]
     Active Substance: DULOXETINE
     Indication: PAIN
     Dosage: 90 MG OD
     Route: 048
     Dates: start: 20181101
  4. LEVOTHYROXINE. [Concomitant]
     Active Substance: LEVOTHYROXINE
     Indication: HYPOTHYROIDISM
     Dosage: 75 MCG OD
     Route: 048
     Dates: start: 20200601
  5. AMITRPTYLINE [Concomitant]
     Indication: SLEEP DISORDER
     Dosage: 25 MG OD
     Route: 048
     Dates: start: 20200901
  6. SINGULAIR [Concomitant]
     Active Substance: MONTELUKAST SODIUM
     Indication: ASTHMA
     Route: 048
     Dates: start: 20191101
  7. HYDROMORPHONE [Concomitant]
     Active Substance: HYDROMORPHONE
     Indication: PAIN MANAGEMENT
     Dosage: 2 MG QID PRN (MAX X 8MG)
     Route: 048
     Dates: start: 20181101
  8. NAPROXEN. [Concomitant]
     Active Substance: NAPROXEN
     Indication: OSTEOARTHRITIS
     Dosage: 500 MG BID
     Route: 048
     Dates: start: 20200801
  9. FASENRA [Suspect]
     Active Substance: BENRALIZUMAB
     Indication: ASTHMA
     Dosage: 30 MG/ML Q4?8WKS
     Route: 058
     Dates: start: 20201120
  10. SALBUTAMOL [Concomitant]
     Active Substance: ALBUTEROL
     Indication: ASTHMA
     Dosage: 100.0MG AS REQUIRED
     Route: 055
     Dates: start: 20051101

REACTIONS (5)
  - Localised infection [Not Recovered/Not Resolved]
  - Fluid retention [Not Recovered/Not Resolved]
  - Lymphadenopathy [Unknown]
  - Fatigue [Recovering/Resolving]
  - Dyspnoea [Not Recovered/Not Resolved]

NARRATIVE: CASE EVENT DATE: 20201125
